FAERS Safety Report 8827478 (Version 1)
Quarter: 2012Q4

REPORT INFORMATION
  Report Type: 
  Country: MX (occurrence: PE)
  Receive Date: 20121005
  Receipt Date: 20121005
  Transmission Date: 20130627
  Serious: Yes (Other)
  Sender: FDA-Public Use
  Company Number: PE-BRISTOL-MYERS SQUIBB COMPANY-17021650

PATIENT
  Age: 54 Year
  Sex: Male

DRUGS (3)
  1. EFAVIRENZ [Suspect]
     Indication: ANTIRETROVIRAL THERAPY
  2. ZIDOVUDINE [Suspect]
     Indication: ANTIRETROVIRAL THERAPY
  3. LAMIVUDINE [Suspect]
     Indication: ANTIRETROVIRAL THERAPY

REACTIONS (2)
  - Immune reconstitution inflammatory syndrome [Unknown]
  - Meningitis tuberculous [Unknown]
